FAERS Safety Report 14987624 (Version 1)
Quarter: 2018Q2

REPORT INFORMATION
  Report Type: Report from Study
  Country: BR (occurrence: BR)
  Receive Date: 20180608
  Receipt Date: 20180608
  Transmission Date: 20180711
  Serious: Yes (Hospitalization)
  Sender: FDA-Public Use
  Company Number: PHHY2018BR064668

PATIENT
  Age: 47 Year
  Sex: Male
  Weight: 82 kg

DRUGS (1)
  1. VOTRIENT [Suspect]
     Active Substance: PAZOPANIB HYDROCHLORIDE
     Indication: METASTATIC RENAL CELL CARCINOMA
     Dosage: 800 MG, QD
     Route: 048
     Dates: start: 20180316

REACTIONS (17)
  - Ear discomfort [Unknown]
  - Hiccups [Unknown]
  - Flatulence [Unknown]
  - Vomiting [Unknown]
  - Swelling [Unknown]
  - Peripheral swelling [Unknown]
  - Abdominal distension [Unknown]
  - Abdominal pain [Unknown]
  - Obstruction [Unknown]
  - Malaise [Unknown]
  - Asthenia [Unknown]
  - Discomfort [Unknown]
  - Nausea [Recovered/Resolved]
  - Decreased appetite [Unknown]
  - Dyspnoea [Unknown]
  - Choking [Unknown]
  - Weight decreased [Unknown]

NARRATIVE: CASE EVENT DATE: 20180322
